FAERS Safety Report 15994933 (Version 1)
Quarter: 2019Q1

REPORT INFORMATION
  Report Type: Spontaneous
  Country: US (occurrence: US)
  Receive Date: 20190222
  Receipt Date: 20190222
  Transmission Date: 20190418
  Serious: Yes (Other)
  Sender: FDA-Public Use
  Company Number: US-BAYER-2019-035593

PATIENT
  Age: 80 Year
  Sex: Male
  Weight: 77 kg

DRUGS (2)
  1. CLARITIN [Suspect]
     Active Substance: LORATADINE
     Indication: SKIN DISORDER
     Dosage: UNK
     Dates: start: 20190217
  2. ELIQUIS [Suspect]
     Active Substance: APIXABAN
     Dosage: UNK

REACTIONS (6)
  - Product physical issue [Unknown]
  - Poor quality product administered [Unknown]
  - Cerebral disorder [Unknown]
  - Drug effective for unapproved indication [Unknown]
  - Cerebral haemorrhage [Unknown]
  - Wrong technique in product usage process [Unknown]

NARRATIVE: CASE EVENT DATE: 20190217
